FAERS Safety Report 14965871 (Version 2)
Quarter: 2019Q1

REPORT INFORMATION
  Report Type: Report from Study
  Country: None (occurrence: CA)
  Receive Date: 20180602
  Receipt Date: 20190316
  Transmission Date: 20190417
  Serious: Yes (Other)
  Sender: FDA-Public Use
  Company Number: CA-ABBVIE-18K-028-2332852-00

PATIENT
  Age: 47 Year
  Sex: Male

DRUGS (4)
  1. HUMIRA [Suspect]
     Active Substance: ADALIMUMAB
     Indication: CROHN^S DISEASE
     Route: 058
     Dates: start: 20090525, end: 2018
  2. HUMIRA [Suspect]
     Active Substance: ADALIMUMAB
     Route: 058
  3. AZATHIOPRINE. [Concomitant]
     Active Substance: AZATHIOPRINE
     Indication: PRODUCT USED FOR UNKNOWN INDICATION
  4. 5-ASA [Concomitant]
     Active Substance: MESALAMINE
     Indication: PRODUCT USED FOR UNKNOWN INDICATION

REACTIONS (4)
  - Hernia [Not Recovered/Not Resolved]
  - Sneezing [Unknown]
  - Procedural intestinal perforation [Recovered/Resolved]
  - Sepsis [Unknown]

NARRATIVE: CASE EVENT DATE: 2018
